FAERS Safety Report 7781406-X (Version None)
Quarter: 2011Q3

REPORT INFORMATION
  Report Type: 
  Country: None (occurrence: None)
  Receive Date: 20110923
  Receipt Date: 20110914
  Transmission Date: 20111222
  Serious: Yes (Other)
  Sender: FDA-Public Use
  Company Number: LEO-2011-00751

PATIENT
  Sex: Male

DRUGS (1)
  1. INNOHEP [Suspect]
     Indication: LIGAMENT SPRAIN
     Dosage: 3500 IU (1 IN 1 D), SUBCUTANEOUS
     Route: 058

REACTIONS (1)
  - THROMBOSIS [None]
